FAERS Safety Report 5895241-0 (Version None)
Quarter: 2008Q3

REPORT INFORMATION
  Report Type: 
  Country: None (occurrence: None)
  Receive Date: 20080924
  Receipt Date: 20080917
  Transmission Date: 20090109
  Serious: Yes (Other)
  Sender: FDA-Public Use
  Company Number: B0535947A

PATIENT
  Age: 65 Year
  Sex: Male

DRUGS (11)
  1. ALLOPURINOL [Suspect]
     Indication: GOUT
     Dosage: 100MG UNKNOWN
     Route: 065
  2. RANITIDINE HYDROCHLORIDE [Suspect]
     Dosage: 150MG PER DAY
     Route: 065
  3. SERETIDE [Suspect]
     Indication: ASTHMA
     Dosage: 2PUFF TWICE PER DAY
     Route: 055
  4. VENTOLIN [Suspect]
     Indication: ASTHMA
     Dosage: 100MCG AS REQUIRED
     Route: 055
  5. AMINOPHYLLINE [Suspect]
     Indication: DRUG USE FOR UNKNOWN INDICATION
     Dosage: 225MG UNKNOWN
  6. ASPIRIN [Suspect]
     Indication: DRUG USE FOR UNKNOWN INDICATION
     Dosage: 75MG UNKNOWN
  7. CALCICHEW D3 FORTE [Suspect]
     Indication: DRUG USE FOR UNKNOWN INDICATION
  8. ACETAMINOPHEN W/ CODEINE [Suspect]
     Indication: ARTHRITIS
     Dosage: 50MG UNKNOWN
  9. FRUSEMIDE [Suspect]
     Indication: DRUG USE FOR UNKNOWN INDICATION
     Dosage: 40MG UNKNOWN
  10. RAMIPRIL [Suspect]
     Dosage: 10MG PER DAY
     Route: 065
  11. SIMVASTATIN [Suspect]
     Indication: BLOOD CHOLESTEROL INCREASED
     Route: 065

REACTIONS (7)
  - DYSPNOEA [None]
  - INCREASED UPPER AIRWAY SECRETION [None]
  - INSOMNIA [None]
  - LOWER RESPIRATORY TRACT INFECTION [None]
  - NOCTURNAL DYSPNOEA [None]
  - PARALYSIS [None]
  - TENSION [None]
